FAERS Safety Report 19630072 (Version 1)
Quarter: 2021Q3

REPORT INFORMATION
  Report Type: Spontaneous
  Country: US (occurrence: US)
  Receive Date: 20210728
  Receipt Date: 20210728
  Transmission Date: 20211014
  Serious: No
  Sender: FDA-Public Use
  Company Number: US-SA-2021SA239615

PATIENT
  Sex: Female

DRUGS (2)
  1. DUPIXENT [Suspect]
     Active Substance: DUPILUMAB
     Indication: PHOTOSENSITIVITY REACTION
  2. DUPIXENT [Suspect]
     Active Substance: DUPILUMAB
     Indication: ATOPY

REACTIONS (2)
  - Therapeutic response decreased [Unknown]
  - Product use in unapproved indication [Unknown]
